FAERS Safety Report 8563895-6 (Version None)
Quarter: 2012Q3

REPORT INFORMATION
  Report Type: 
  Country: None (occurrence: None)
  Receive Date: 20120727
  Receipt Date: 20120727
  Transmission Date: 20120928
  Serious: Yes (Other)
  Sender: FDA-Public Use
  Company Number: None

PATIENT
  Age: 46 Year
  Sex: Female
  Weight: 79.09 kg

DRUGS (1)
  1. TRIAMTERENE AND HYDROCHLOROTHIAZIDE [Suspect]
     Indication: GRAVITATIONAL OEDEMA
     Dosage: 37.5-25 MG TWICE DAILY PO
     Route: 048

REACTIONS (2)
  - NEPHROLITHIASIS [None]
  - BACK PAIN [None]
